FAERS Safety Report 20572496 (Version 1)
Quarter: 2022Q1

REPORT INFORMATION
  Report Type: Spontaneous
  Country: US (occurrence: None)
  Receive Date: 20220308
  Receipt Date: 20220308
  Transmission Date: 20220423
  Serious: No
  Sender: FDA-Public Use
  Company Number: None

PATIENT
  Sex: Male
  Weight: 104.6 kg

DRUGS (13)
  1. TEMOZOLOMIDE [Suspect]
     Active Substance: TEMOZOLOMIDE
     Indication: Brain neoplasm malignant
     Dosage: OTHER FREQUENCY : QD 5 OF 28 DAYS;?
     Route: 048
  2. OXYCODONE [Concomitant]
     Active Substance: OXYCODONE
  3. ONDANSETRON [Concomitant]
     Active Substance: ONDANSETRON
  4. ATORVASTATIN [Concomitant]
     Active Substance: ATORVASTATIN
  5. CYCLOBENZAPRINE [Concomitant]
     Active Substance: CYCLOBENZAPRINE
  6. DULOXETINE [Concomitant]
     Active Substance: DULOXETINE
  7. LEVETIRACETAM [Concomitant]
     Active Substance: LEVETIRACETAM
  8. LOSARTAN [Concomitant]
     Active Substance: LOSARTAN
  9. MIRTAZAPINE [Concomitant]
     Active Substance: MIRTAZAPINE
  10. PROTONIX [Concomitant]
     Active Substance: PANTOPRAZOLE SODIUM
  11. SEMGLEE [Concomitant]
     Active Substance: INSULIN GLARGINE
  12. SERTRALINE [Concomitant]
     Active Substance: SERTRALINE HYDROCHLORIDE
  13. NOVOLOG [Concomitant]
     Active Substance: INSULIN ASPART

REACTIONS (1)
  - Platelet count decreased [None]
